FAERS Safety Report 6035621-6 (Version None)
Quarter: 2009Q1

REPORT INFORMATION
  Report Type: 
  Country: None (occurrence: None)
  Receive Date: 20090113
  Receipt Date: 20090105
  Transmission Date: 20090719
  Serious: Yes (Other)
  Sender: FDA-Public Use
  Company Number: PHHY2008DE32843

PATIENT
  Sex: Male

DRUGS (1)
  1. RASILEZ [Suspect]

REACTIONS (2)
  - NASAL CONGESTION [None]
  - SURGERY [None]
